FAERS Safety Report 22610823 (Version 1)
Quarter: 2023Q2

REPORT INFORMATION
  Report Type: Spontaneous
  Country: US (occurrence: None)
  Receive Date: 20230615
  Receipt Date: 20230615
  Transmission Date: 20230721
  Serious: No
  Sender: FDA-Public Use
  Company Number: None

PATIENT
  Age: 74 Year
  Sex: Female
  Weight: 74.39 kg

DRUGS (11)
  1. SCEMBLIX [Suspect]
     Active Substance: ASCIMINIB HYDROCHLORIDE
     Indication: Chronic myeloid leukaemia
     Dosage: FREQUENCY : DAILY;?
     Route: 048
     Dates: start: 202304
  2. ACYCLOVIR [Concomitant]
     Active Substance: ACYCLOVIR
  3. ALENDRONATE [Concomitant]
     Active Substance: ALENDRONATE SODIUM
  4. AMITRIPTYLINE [Concomitant]
     Active Substance: AMITRIPTYLINE
  5. FAMOTIDINE [Concomitant]
     Active Substance: FAMOTIDINE
  6. LEVOTHYROXINE [Concomitant]
     Active Substance: LEVOTHYROXINE
  7. LORATADINE [Concomitant]
     Active Substance: LORATADINE
  8. METOPROLOL [Concomitant]
     Active Substance: METOPROLOL
  9. PROBIOTICS NOS [Concomitant]
     Active Substance: PROBIOTICS NOS
  10. SUMATRIPTAN [Concomitant]
     Active Substance: SUMATRIPTAN
  11. VIT B12-FOLIC ACID [Concomitant]

REACTIONS (1)
  - Full blood count decreased [None]
